FAERS Safety Report 17543206 (Version 2)
Quarter: 2020Q1

REPORT INFORMATION
  Report Type: Spontaneous
  Country: US (occurrence: US)
  Receive Date: 20200316
  Receipt Date: 20200331
  Transmission Date: 20200409
  Serious: Yes (Hospitalization, Other)
  Sender: FDA-Public Use
  Company Number: US-AUROBINDO-AUR-APL-2020-013095

PATIENT
  Age: 17 Year
  Sex: Female

DRUGS (2)
  1. IMMUNOGLOBULIN [Concomitant]
     Indication: ENCEPHALITIS AUTOIMMUNE
     Dosage: UNK
     Route: 042
  2. METHYLPREDNISOLONE SODIUM SUCCINATE FOR INJECTION [Suspect]
     Active Substance: METHYLPREDNISOLONE SODIUM SUCCINATE
     Indication: ENCEPHALITIS AUTOIMMUNE
     Dosage: 1 GRAM, ONCE A DAY
     Route: 042

REACTIONS (3)
  - Insomnia [Recovered/Resolved]
  - Toxicity to various agents [Unknown]
  - Anxiety [Recovered/Resolved]
